FAERS Safety Report 5716348-4 (Version None)
Quarter: 2008Q2

REPORT INFORMATION
  Report Type: 
  Country: None (occurrence: None)
  Receive Date: 20080424
  Receipt Date: 20080415
  Transmission Date: 20081010
  Serious: Yes (Hospitalization)
  Sender: FDA-Public Use
  Company Number: DE-BRISTOL-MYERS SQUIBB COMPANY-14144240

PATIENT
  Age: 76 Year
  Sex: Female
  Weight: 65 kg

DRUGS (5)
  1. ERBITUX [Suspect]
     Indication: COLORECTAL CANCER METASTATIC
     Dosage: 400MG/M2 ON 19 DEC2007,FOLLOWED BY WEEKLY INFUSUIN OF 250MG/M2,DISCONTINUED AT 24JAN07
     Route: 042
     Dates: start: 20071219, end: 20080117
  2. IRINOTECAN HCL [Suspect]
     Indication: COLORECTAL CANCER METASTATIC
     Route: 042
     Dates: start: 20071219
  3. GRANISETRON HCL [Concomitant]
     Indication: PREMEDICATION
     Dates: start: 20071219
  4. CLEMASTINE FUMARATE [Concomitant]
     Indication: PREMEDICATION
     Dates: start: 20071219
  5. CORTICOSTEROID [Concomitant]
     Indication: PREMEDICATION
     Dates: start: 20071219

REACTIONS (3)
  - ENTEROCOLITIS INFECTIOUS [None]
  - PANCYTOPENIA [None]
  - RENAL FAILURE [None]
